FAERS Safety Report 20955736 (Version 1)
Quarter: 2022Q2

REPORT INFORMATION
  Report Type: Spontaneous
  Country: US (occurrence: None)
  Receive Date: 20220613
  Receipt Date: 20220613
  Transmission Date: 20220720
  Serious: Yes (Other)
  Sender: FDA-Public Use
  Company Number: None

PATIENT
  Age: 81 Year
  Sex: Female
  Weight: 75.6 kg

DRUGS (11)
  1. JARDIANCE [Suspect]
     Active Substance: EMPAGLIFLOZIN
     Indication: Cardiac failure
     Dosage: FREQUENCY : DAILY;?
     Route: 048
     Dates: start: 20220524, end: 20220530
  2. ELIQUIS [Concomitant]
     Active Substance: APIXABAN
  3. PULMICORT [Concomitant]
  4. VITAMIN B12 [Concomitant]
     Active Substance: CYANOCOBALAMIN
  5. LASIX [Concomitant]
     Active Substance: FUROSEMIDE
  6. DUO-NEB [Concomitant]
  7. MAGNESIUM OXIDE [Concomitant]
     Active Substance: MAGNESIUM OXIDE
  8. METOPROLOL [Concomitant]
  9. POTASSIUM CHLORIDE [Concomitant]
     Active Substance: POTASSIUM CHLORIDE
  10. TYLENOL [Concomitant]
  11. MIRALAX [Concomitant]

REACTIONS (2)
  - Confusional state [None]
  - Hallucinations, mixed [None]

NARRATIVE: CASE EVENT DATE: 20220529
